FAERS Safety Report 5585612-4 (Version None)
Quarter: 2008Q1

REPORT INFORMATION
  Report Type: 
  Country: None (occurrence: None)
  Receive Date: 20080109
  Receipt Date: 20080107
  Transmission Date: 20080703
  Serious: Yes (Hospitalization)
  Sender: FDA-Public Use
  Company Number: DE-MERCK-0801DEU00032

PATIENT
  Age: 47 Year
  Sex: Male

DRUGS (1)
  1. PRIMAXIN [Suspect]
     Indication: GASTROINTESTINAL INFECTION
     Route: 042
     Dates: start: 20080104, end: 20080106

REACTIONS (3)
  - AGITATION [None]
  - CONFUSIONAL STATE [None]
  - CONVULSION [None]
